FAERS Safety Report 19310905 (Version 9)
Quarter: 2021Q3

REPORT INFORMATION
  Report Type: Report from Study
  Country: US (occurrence: US)
  Receive Date: 20210526
  Receipt Date: 20210919
  Transmission Date: 20211014
  Serious: Yes (Hospitalization, Other)
  Sender: FDA-Public Use
  Company Number: NVSC2021US116017

PATIENT
  Age: 63 Year
  Sex: Male
  Weight: 99.77 kg

DRUGS (2)
  1. TREPROSTINIL. [Suspect]
     Active Substance: TREPROSTINIL
     Dosage: 23 NG/KG/MIN
     Route: 042
  2. TREPROSTINIL. [Suspect]
     Active Substance: TREPROSTINIL
     Indication: PULMONARY ARTERIAL HYPERTENSION
     Dosage: 19 NG/KG/MIN, CONT
     Route: 042
     Dates: start: 20210129

REACTIONS (14)
  - Oxygen saturation decreased [Unknown]
  - Weight decreased [Unknown]
  - Headache [Unknown]
  - Complication associated with device [Unknown]
  - Respiratory disorder [Unknown]
  - Abdominal discomfort [Unknown]
  - Pain in jaw [Unknown]
  - Device malfunction [Unknown]
  - Pulmonary hypertension [Unknown]
  - Pneumonia [Unknown]
  - Loss of consciousness [Unknown]
  - Dyspnoea [Unknown]
  - Nausea [Unknown]
  - Sepsis [Unknown]

NARRATIVE: CASE EVENT DATE: 20210605
